FAERS Safety Report 11893103 (Version 1)
Quarter: 2016Q1

REPORT INFORMATION
  Report Type: Spontaneous
  Country: US (occurrence: US)
  Receive Date: 20160106
  Receipt Date: 20160106
  Transmission Date: 20160526
  Serious: No
  Sender: FDA-Public Use
  Company Number: US-TARO-2015TAR00673

PATIENT
  Sex: Female

DRUGS (1)
  1. CLOTRIMAZOLE ANTIFUNGAL [Suspect]
     Active Substance: CLOTRIMAZOLE

REACTIONS (1)
  - Condition aggravated [Unknown]
